FAERS Safety Report 19926022 (Version 1)
Quarter: 2021Q4

REPORT INFORMATION
  Report Type: Spontaneous
  Country: FR (occurrence: FR)
  Receive Date: 20211006
  Receipt Date: 20211006
  Transmission Date: 20220303
  Serious: Yes (Other)
  Sender: FDA-Public Use
  Company Number: FR-002147023-NVSC2021FR122604

PATIENT
  Sex: Male

DRUGS (3)
  1. ITRACONAZOLE [Interacting]
     Active Substance: ITRACONAZOLE
     Indication: Aspergillus infection
     Dosage: 100 MILLIGRAM
     Route: 065
  2. XARELTO [Interacting]
     Active Substance: RIVAROXABAN
     Indication: Pulmonary embolism
     Dosage: UNK (SINCE TWO WEEKS)
     Route: 065
     Dates: start: 20210525
  3. XARELTO [Interacting]
     Active Substance: RIVAROXABAN
     Dosage: UNK (AROUND 11 MAY 2021)
     Route: 065

REACTIONS (2)
  - Haemorrhage [Unknown]
  - Drug interaction [Unknown]
